FAERS Safety Report 6977395-8 (Version None)
Quarter: 2010Q3

REPORT INFORMATION
  Report Type: 
  Country: None (occurrence: None)
  Receive Date: 20100910
  Receipt Date: 20100901
  Transmission Date: 20110219
  Serious: Yes (Death, Hospitalization)
  Sender: FDA-Public Use
  Company Number: US-ABBOTT-10P-163-0659590-00

PATIENT
  Sex: Male
  Weight: 98 kg

DRUGS (10)
  1. DEPAKOTE [Suspect]
     Indication: CONVULSION
     Dates: start: 20100711, end: 20100718
  2. DEPAKOTE [Suspect]
     Dosage: 1500 MG LOADING DOSE
     Dates: start: 20100722, end: 20100722
  3. DEPAKOTE [Suspect]
     Dates: start: 20100723
  4. DULCOLAX [Concomitant]
     Indication: CONSTIPATION PROPHYLAXIS
  5. FLORINEF [Concomitant]
     Indication: CONVULSION
  6. KEPPRA [Concomitant]
     Indication: CONVULSION PROPHYLAXIS
  7. LASIX [Concomitant]
     Indication: PRODUCT USED FOR UNKNOWN INDICATION
  8. UNKNOWN INTRAVENOUS FLUIDS [Concomitant]
     Indication: PRODUCT USED FOR UNKNOWN INDICATION
     Dates: start: 20100701, end: 20100712
  9. ZOSYN [Concomitant]
     Indication: PRODUCT USED FOR UNKNOWN INDICATION
     Dates: start: 20100701
  10. LEVAQUIN [Concomitant]
     Indication: PRODUCT USED FOR UNKNOWN INDICATION
     Dates: start: 20100701

REACTIONS (5)
  - ANTICONVULSANT DRUG LEVEL ABOVE THERAPEUTIC [None]
  - CONVULSION [None]
  - FATIGUE [None]
  - NAUSEA [None]
  - NEOPLASM MALIGNANT [None]
